FAERS Safety Report 24663826 (Version 2)
Quarter: 2024Q4

REPORT INFORMATION
  Report Type: Spontaneous
  Country: FR (occurrence: FR)
  Receive Date: 20241126
  Receipt Date: 20241203
  Transmission Date: 20250115
  Serious: Yes (Other)
  Sender: ROCHE
  Company Number: FR-ROCHE-10000133917

PATIENT
  Age: 85 Year
  Sex: Male

DRUGS (4)
  1. VABYSMO [Suspect]
     Active Substance: FARICIMAB-SVOA
     Indication: Neovascular age-related macular degeneration
     Dosage: 6TH INJECTION ON 06/NOV/2024
     Route: 065
  2. XARELTO [Concomitant]
     Active Substance: RIVAROXABAN
  3. ATENOLOL [Concomitant]
     Active Substance: ATENOLOL
  4. PRAVASTATIN [Concomitant]
     Active Substance: PRAVASTATIN

REACTIONS (4)
  - Vitreous prolapse [Unknown]
  - Optic nerve sheath haemorrhage [Unknown]
  - Ocular hypertension [Unknown]
  - Vitreous disorder [Recovered/Resolved]
